FAERS Safety Report 9737662 (Version 2)
Quarter: 2013Q4

REPORT INFORMATION
  Report Type: Report from Study
  Country: BE (occurrence: BE)
  Receive Date: 20131208
  Receipt Date: 20131208
  Transmission Date: 20140711
  Serious: Yes (Other)
  Sender: FDA-Public Use
  Company Number: BE-TEVA-403439ISR

PATIENT
  Age: 53 Year
  Sex: Male

DRUGS (6)
  1. COPAXONE [Suspect]
     Indication: MULTIPLE SCLEROSIS
     Dosage: 20 MILLIGRAM DAILY;
     Route: 058
     Dates: start: 20110401
  2. LISINOPRIL SANDOZ [Concomitant]
     Route: 048
  3. DOC INDAPA [Concomitant]
     Route: 048
  4. PROGOR [Concomitant]
     Route: 048
  5. GLUCOPHAGE [Concomitant]
     Route: 048
  6. LIPITOR [Concomitant]
     Route: 048

REACTIONS (2)
  - Injection site necrosis [Not Recovered/Not Resolved]
  - Fistula [Not Recovered/Not Resolved]
